FAERS Safety Report 17389872 (Version 1)
Quarter: 2020Q1

REPORT INFORMATION
  Report Type: Spontaneous
  Country: US (occurrence: US)
  Receive Date: 20200123
  Receipt Date: 20200123
  Transmission Date: 20200409
  Serious: No
  Sender: FDA-Public Use
  Company Number: None

PATIENT
  Sex: Female

DRUGS (1)
  1. HUMIRA [Suspect]
     Active Substance: ADALIMUMAB
     Indication: PRODUCT USED FOR UNKNOWN INDICATION
     Route: 058
     Dates: start: 20191227

REACTIONS (10)
  - Irritability [None]
  - Mood swings [None]
  - Crying [None]
  - Diarrhoea [None]
  - Neuropathy peripheral [None]
  - Anaemia [None]
  - Skin disorder [None]
  - Eczema [None]
  - Pruritus [None]
  - Condition aggravated [None]
